FAERS Safety Report 6674457-X (Version None)
Quarter: 2010Q2

REPORT INFORMATION
  Report Type: 
  Country: None (occurrence: None)
  Receive Date: 20100409
  Receipt Date: 20100405
  Transmission Date: 20101027
  Serious: Yes (Life-Threatening, Other)
  Sender: FDA-Public Use
  Company Number: PHHY2010US21184

PATIENT
  Sex: Male

DRUGS (2)
  1. VALTURNA [Suspect]
     Indication: BLOOD PRESSURE
     Dosage: 150/160 MG, QD
     Dates: start: 20100201
  2. DIOVAN [Concomitant]

REACTIONS (3)
  - HERNIA REPAIR [None]
  - HYPOTENSION [None]
  - RESUSCITATION [None]
